FAERS Safety Report 4398199-9 (Version None)
Quarter: 2004Q3

REPORT INFORMATION
  Report Type: 
  Country: None (occurrence: None)
  Receive Date: 20040713
  Receipt Date: 20040630
  Transmission Date: 20050211
  Serious: Yes (Life-Threatening)
  Sender: FDA-Public Use
  Company Number: JP-JNJFOC-20040608639

PATIENT
  Age: 46 Year
  Sex: Male

DRUGS (1)
  1. REMICADE [Suspect]
     Indication: RHEUMATOID ARTHRITIS
     Dosage: INTRAVENOUS
     Route: 042
     Dates: start: 20040213

REACTIONS (4)
  - LUNG ADENOCARCINOMA STAGE IV [None]
  - LYMPHADENOPATHY [None]
  - NEUROENDOCRINE CARCINOMA [None]
  - SQUAMOUS CELL CARCINOMA [None]
